FAERS Safety Report 6211955-7 (Version None)
Quarter: 2009Q2

REPORT INFORMATION
  Report Type: 
  Country: None (occurrence: None)
  Receive Date: 20090529
  Receipt Date: 20090513
  Transmission Date: 20091009
  Serious: Yes (Hospitalization)
  Sender: FDA-Public Use
  Company Number: 8046202

PATIENT
  Age: 18 Year
  Sex: Female

DRUGS (3)
  1. KEPPRA [Suspect]
     Indication: CONVULSION
  2. LAMICTAL [Suspect]
     Indication: CONVULSION
     Dosage: 900 MG /D PO
     Route: 048
     Dates: start: 20060101
  3. PROGESTERONE [Concomitant]

REACTIONS (2)
  - CONVULSION [None]
  - DEPRESSION [None]
